FAERS Safety Report 11132194 (Version 1)
Quarter: 2015Q2

REPORT INFORMATION
  Report Type: Spontaneous
  Country: US (occurrence: US)
  Receive Date: 20150522
  Receipt Date: 20150522
  Transmission Date: 20150821
  Serious: Yes (Hospitalization, Other)
  Sender: FDA-Public Use
  Company Number: US-ELI_LILLY_AND_COMPANY-US201505004546

PATIENT
  Age: 61 Year
  Sex: Male

DRUGS (2)
  1. INSULIN HUMAN [Suspect]
     Active Substance: INSULIN HUMAN
     Indication: TYPE 2 DIABETES MELLITUS
     Dosage: 35 U, BID
     Route: 065
     Dates: start: 201412
  2. HEPARIN [Suspect]
     Active Substance: HEPARIN SODIUM
     Indication: PRODUCT USED FOR UNKNOWN INDICATION
     Dosage: UNK
     Route: 065

REACTIONS (13)
  - Atrial fibrillation [Unknown]
  - Pulmonary congestion [Unknown]
  - Gastric ulcer haemorrhage [Unknown]
  - Decreased appetite [Recovered/Resolved]
  - Pneumonia [Unknown]
  - Cardiac failure congestive [Unknown]
  - Drug dose omission [Unknown]
  - Viral infection [Unknown]
  - Medication error [Unknown]
  - Syncope [Unknown]
  - Decubitus ulcer [Unknown]
  - Nasopharyngitis [Unknown]
  - Blood glucose decreased [Unknown]

NARRATIVE: CASE EVENT DATE: 201502
